FAERS Safety Report 15117304 (Version 1)
Quarter: 2018Q3

REPORT INFORMATION
  Report Type: Spontaneous
  Country: US (occurrence: US)
  Receive Date: 20180706
  Receipt Date: 20180706
  Transmission Date: 20181010
  Serious: No
  Sender: FDA-Public Use
  Company Number: US-BEH-2018092447

PATIENT
  Age: 47 Year
  Sex: Male
  Weight: 63.49 kg

DRUGS (12)
  1. EPINEPHRINE. [Concomitant]
     Active Substance: EPINEPHRINE
  2. DIPHENHYDRAMINE. [Concomitant]
     Active Substance: DIPHENHYDRAMINE
  3. LIDOCAINE. [Concomitant]
     Active Substance: LIDOCAINE
  4. GASTROCROM [Concomitant]
     Active Substance: CROMOLYN SODIUM
  5. HIZENTRA [Suspect]
     Active Substance: HUMAN IMMUNOGLOBULIN G
     Indication: SELECTIVE IGG SUBCLASS DEFICIENCY
     Dosage: 100 MG/KG, QW
     Route: 058
     Dates: start: 20180613
  6. HYDROXYZINE [Concomitant]
     Active Substance: HYDROXYZINE HYDROCHLORIDE
  7. NALTREXONE [Concomitant]
     Active Substance: NALTREXONE
  8. KETOTIFEN FUMARATE. [Concomitant]
     Active Substance: KETOTIFEN FUMARATE
  9. SULFASALAZINE. [Concomitant]
     Active Substance: SULFASALAZINE
  10. ACETAMINOPHEN. [Concomitant]
     Active Substance: ACETAMINOPHEN
  11. ALPRAZOLAM. [Concomitant]
     Active Substance: ALPRAZOLAM
  12. FAMCICLOVIR. [Concomitant]
     Active Substance: FAMCICLOVIR

REACTIONS (2)
  - Administration site scab [Unknown]
  - Infusion site erythema [Unknown]

NARRATIVE: CASE EVENT DATE: 201806
